FAERS Safety Report 19924242 (Version 1)
Quarter: 2021Q4

REPORT INFORMATION
  Report Type: Spontaneous
  Country: US (occurrence: US)
  Receive Date: 20211006
  Receipt Date: 20211006
  Transmission Date: 20220304
  Serious: Yes (Other)
  Sender: FDA-Public Use
  Company Number: US-ELI_LILLY_AND_COMPANY-US202109011007

PATIENT
  Age: 59 Year
  Sex: Female

DRUGS (2)
  1. TALTZ [Suspect]
     Active Substance: IXEKIZUMAB
     Indication: Psoriasis
     Dosage: 80 MG, OTHER
     Route: 058
     Dates: start: 20210101
  2. IMIQUIMOD [Suspect]
     Active Substance: IMIQUIMOD
     Indication: Neoplasm malignant
     Dosage: UNK UNK, UNKNOWN
     Route: 065
     Dates: start: 202106

REACTIONS (3)
  - Neoplasm malignant [Unknown]
  - Rash [Unknown]
  - Pruritus [Unknown]

NARRATIVE: CASE EVENT DATE: 20210630
